FAERS Safety Report 8693808 (Version 2)
Quarter: 2012Q4

REPORT INFORMATION
  Report Type: Report from Study
  Country: TR (occurrence: TR)
  Receive Date: 20120731
  Receipt Date: 20120921
  Transmission Date: 20130627
  Serious: Yes (Life-Threatening)
  Sender: FDA-Public Use
  Company Number: TR-JNJFOC-20120711253

PATIENT
  Age: 33 None
  Sex: Male

DRUGS (3)
  1. PALIPERIDONE PALMITATE [Suspect]
     Indication: SCHIZOPHRENIA
     Route: 030
     Dates: start: 20120323
  2. ALPRAZOLAM [Concomitant]
     Indication: RESTLESSNESS
     Route: 065
     Dates: start: 20120701, end: 20120703
  3. ALPRAZOLAM [Concomitant]
     Indication: RESTLESSNESS
     Route: 065
     Dates: start: 20120708, end: 20120710

REACTIONS (1)
  - Suicide attempt [Recovered/Resolved]
